FAERS Safety Report 7538202-8 (Version None)
Quarter: 2011Q2

REPORT INFORMATION
  Report Type: 
  Country: None (occurrence: None)
  Receive Date: 20110609
  Receipt Date: 20021106
  Transmission Date: 20111010
  Serious: Yes (Death)
  Sender: FDA-Public Use
  Company Number: PHEH2002US09717

PATIENT
  Sex: Male

DRUGS (2)
  1. CLOZAPINE [Suspect]
     Dosage: 450 MG/DAY
     Route: 048
  2. CLOZAPINE [Suspect]
     Indication: BIPOLAR DISORDER
     Dosage: 100 MG/DAY
     Route: 048
     Dates: start: 20011101

REACTIONS (1)
  - DEATH [None]
